FAERS Safety Report 19733684 (Version 5)
Quarter: 2021Q4

REPORT INFORMATION
  Report Type: Report from Study
  Country: US (occurrence: US)
  Receive Date: 20210824
  Receipt Date: 20211123
  Transmission Date: 20220303
  Serious: Yes (Hospitalization)
  Sender: FDA-Public Use
  Company Number: US-BAXTER-2021BAX026133

PATIENT
  Age: 76 Year
  Sex: Male
  Weight: 89 kg

DRUGS (39)
  1. DOXIL [Suspect]
     Active Substance: DOXORUBICIN HYDROCHLORIDE
     Indication: Diffuse large B-cell lymphoma
     Route: 065
     Dates: start: 20200822, end: 20201209
  2. FLUDARABINE [Suspect]
     Active Substance: FLUDARABINE PHOSPHATE
     Indication: Diffuse large B-cell lymphoma
     Route: 042
     Dates: start: 20210714, end: 20210714
  3. FLUDARABINE [Suspect]
     Active Substance: FLUDARABINE PHOSPHATE
     Route: 042
     Dates: start: 20210715, end: 20210715
  4. FLUDARABINE [Suspect]
     Active Substance: FLUDARABINE PHOSPHATE
     Route: 042
     Dates: start: 20210716, end: 20210716
  5. ALBUTEROL [Concomitant]
     Active Substance: ALBUTEROL
     Indication: Chronic obstructive pulmonary disease
     Dosage: 2 PUFF X PRN; INH
     Route: 050
  6. ACETAMINOPHEN [Concomitant]
     Active Substance: ACETAMINOPHEN
     Indication: Premedication
     Route: 048
     Dates: start: 20210719, end: 20210719
  7. ACYCLOVIR [Concomitant]
     Active Substance: ACYCLOVIR
     Indication: Prophylaxis
     Route: 048
     Dates: start: 20210602
  8. aluminum-magnesium hydroxide/simethicone [Concomitant]
     Indication: Dyspepsia
     Route: 048
     Dates: start: 20210717, end: 20210717
  9. aluminum-magnesium hydroxide/simethicone [Concomitant]
     Indication: Prophylaxis
  10. BACTRIM [Concomitant]
     Active Substance: SULFAMETHOXAZOLE\TRIMETHOPRIM
     Indication: Prophylaxis
     Dosage: 400MG-80MG
     Route: 048
     Dates: start: 20210602
  11. COLACE [Concomitant]
     Active Substance: DOCUSATE SODIUM
     Indication: Constipation
     Dosage: PRN
     Route: 048
     Dates: start: 20200819
  12. DIPHENHYDRAMINE [Concomitant]
     Active Substance: DIPHENHYDRAMINE
     Indication: Premedication
     Route: 042
     Dates: start: 20210719, end: 20210719
  13. FUROSEMIDE [Concomitant]
     Active Substance: FUROSEMIDE
     Indication: Hypertension
     Route: 042
     Dates: start: 20210716, end: 20210716
  14. FUROSEMIDE [Concomitant]
     Active Substance: FUROSEMIDE
     Indication: Prophylaxis
  15. LIDOCAINE [Concomitant]
     Active Substance: LIDOCAINE
     Indication: Central venous catheterisation
     Route: 042
     Dates: start: 20210708, end: 20210708
  16. MAGNESIUM CITRATE [Concomitant]
     Active Substance: MAGNESIUM CITRATE
     Indication: Constipation
     Route: 048
     Dates: start: 20210717, end: 20210717
  17. ONDANSETRON [Concomitant]
     Active Substance: ONDANSETRON
     Indication: Chemotherapy
     Dosage: PRN
     Route: 042
     Dates: start: 20210717
  18. ONDANSETRON [Concomitant]
     Active Substance: ONDANSETRON
     Indication: Supportive care
  19. PALONOSETRON [Concomitant]
     Active Substance: PALONOSETRON
     Indication: Chemotherapy
     Route: 042
     Dates: start: 20210714, end: 20210714
  20. PALONOSETRON [Concomitant]
     Active Substance: PALONOSETRON
     Indication: Supportive care
  21. POLYETHYLENE GLYCOL [Concomitant]
     Active Substance: POLYETHYLENE GLYCOL
     Indication: Laxative supportive care
     Route: 048
     Dates: start: 20200820
  22. sen na [Concomitant]
     Indication: Laxative supportive care
     Route: 048
     Dates: start: 20200720
  23. APREPITANT [Concomitant]
     Active Substance: APREPITANT
     Indication: Nausea
     Route: 065
  24. APREPITANT [Concomitant]
     Active Substance: APREPITANT
     Indication: Prophylaxis
  25. ALLOPURINOL [Concomitant]
     Active Substance: ALLOPURINOL
     Indication: Prophylaxis
     Route: 048
     Dates: start: 20210721, end: 20210726
  26. CARDIZEM CD [Concomitant]
     Active Substance: DILTIAZEM HYDROCHLORIDE
     Indication: Prophylaxis
     Route: 048
     Dates: start: 20210726, end: 20210804
  27. DILTIAZEM [Concomitant]
     Active Substance: DILTIAZEM
     Indication: Hypertension
     Route: 048
     Dates: start: 20210721, end: 20210726
  28. ISOSORBIDE MONONITRATE [Concomitant]
     Active Substance: ISOSORBIDE MONONITRATE
     Indication: Hypertension
     Route: 048
     Dates: start: 20210721, end: 20210721
  29. RAMELTEON [Concomitant]
     Active Substance: RAMELTEON
     Indication: Insomnia
     Route: 048
     Dates: start: 20210723, end: 20210724
  30. VITAMIN D3 [Concomitant]
     Active Substance: CHOLECALCIFEROL
     Indication: Supplementation therapy
     Dosage: 1 TABLET
     Route: 048
     Dates: start: 20210727
  31. FAMOTIDINE [Concomitant]
     Active Substance: FAMOTIDINE
     Indication: Nausea
     Route: 065
  32. PANTOPRAZOLE [Concomitant]
     Active Substance: PANTOPRAZOLE
     Indication: Nausea
     Route: 065
  33. APREPITANT [Concomitant]
     Active Substance: APREPITANT
     Indication: Nausea
     Route: 065
  34. APREPITANT [Concomitant]
     Active Substance: APREPITANT
     Indication: Prophylaxis
  35. ASPIRIN [Concomitant]
     Active Substance: ASPIRIN
     Indication: Acute coronary syndrome
     Route: 065
  36. EPINEPHRINE [Concomitant]
     Active Substance: EPINEPHRINE
     Indication: Acute coronary syndrome
     Route: 065
  37. MORPHINE SULFATE [Concomitant]
     Active Substance: MORPHINE SULFATE
     Indication: Acute coronary syndrome
     Route: 065
  38. SODIUM CHLORIDE [Concomitant]
     Active Substance: SODIUM CHLORIDE
     Indication: Acute coronary syndrome
     Route: 065
  39. OXYCODONE [Concomitant]
     Active Substance: OXYCODONE
     Indication: Abdominal pain
     Route: 065

REACTIONS (1)
  - Device related bacteraemia [Recovered/Resolved]

NARRATIVE: CASE EVENT DATE: 20210801
